FAERS Safety Report 7927817-0 (Version None)
Quarter: 2011Q4

REPORT INFORMATION
  Report Type: 
  Country: None (occurrence: None)
  Receive Date: 20111118
  Receipt Date: 20111108
  Transmission Date: 20120403
  Serious: Yes (Hospitalization)
  Sender: FDA-Public Use
  Company Number: US-PERRIGO-11US008005

PATIENT
  Sex: Male
  Weight: 95.238 kg

DRUGS (5)
  1. TRIAMCINOLONE ACETONIDE [Suspect]
  2. METOPROLOL TARTRATE [Concomitant]
     Indication: HYPERTENSION
     Dosage: 25 MG, QD
     Route: 065
     Dates: start: 20100101
  3. LUXIQ [Concomitant]
     Indication: SKIN DISORDER
     Dosage: UNK
     Route: 061
     Dates: end: 20110908
  4. TRIAMCINOLONE ACETONIDE [Suspect]
     Indication: DERMATITIS
     Dosage: INTERMITTENT, AS NEEDED
     Route: 061
     Dates: start: 20110822
  5. TRIAMCINOLONE ACETONIDE [Suspect]

REACTIONS (8)
  - WHITE BLOOD CELL COUNT INCREASED [None]
  - DECREASED APPETITE [None]
  - BLOOD GLUCOSE INCREASED [None]
  - ABDOMINAL DISCOMFORT [None]
  - PAIN IN EXTREMITY [None]
  - PANCREATITIS [None]
  - MUSCULOSKELETAL STIFFNESS [None]
  - WEIGHT DECREASED [None]
